FAERS Safety Report 6887739-3 (Version None)
Quarter: 2010Q3

REPORT INFORMATION
  Report Type: 
  Country: None (occurrence: None)
  Receive Date: 20100730
  Receipt Date: 20100723
  Transmission Date: 20110219
  Serious: Yes (Death)
  Sender: FDA-Public Use
  Company Number: JP-ROCHE-715411

PATIENT
  Sex: Male

DRUGS (33)
  1. ROCEPHIN [Suspect]
     Indication: C-REACTIVE PROTEIN INCREASED
     Route: 041
     Dates: start: 20100614, end: 20100617
  2. SOLULACT [Concomitant]
     Route: 041
     Dates: start: 20100608, end: 20100609
  3. SOLULACT [Concomitant]
     Route: 041
     Dates: start: 20100614, end: 20100614
  4. NAUZELIN [Concomitant]
     Route: 048
     Dates: start: 20100601
  5. ALDACTONE [Concomitant]
     Route: 048
     Dates: start: 20100526
  6. GASPORT [Concomitant]
     Route: 048
     Dates: start: 20100610
  7. ASPARA [Concomitant]
     Dosage: DRUG: ASPARA POTASSIUM(POTASSIUM L-ASPARTATE). DOSE FORM: POWDERED MEDICINE.
     Route: 048
     Dates: start: 20100610
  8. LASIX [Concomitant]
     Route: 048
     Dates: start: 20100610
  9. MAINTATE [Concomitant]
     Route: 048
     Dates: start: 20100610
  10. MUCODYNE [Concomitant]
     Route: 048
     Dates: start: 20100529
  11. DIGOSIN [Concomitant]
     Route: 048
     Dates: start: 20100529
  12. HOKUNALIN [Concomitant]
     Dosage: DRUG: HOKUNALIN:TAPE(TULOBUTEROL), DOSE FORM: TAPE
     Route: 003
     Dates: start: 20100526
  13. WARFARIN SODIUM [Concomitant]
     Dosage: DRUG: WARFARIN(WARFARIN POTASSIUM)
     Route: 048
     Dates: start: 20100608
  14. MYSLEE [Concomitant]
     Route: 048
     Dates: start: 20100604
  15. GLYCERIN (LAXATIVE) [Concomitant]
     Dosage: KENEI G ENEMA.
     Route: 054
     Dates: start: 20100603
  16. VOLTAREN [Concomitant]
     Route: 054
     Dates: start: 20100608
  17. HEPARIN SODIUM [Concomitant]
     Route: 042
     Dates: start: 20100608, end: 20100608
  18. HEPARIN SODIUM [Concomitant]
     Route: 042
     Dates: start: 20100609, end: 20100609
  19. HEPARIN SODIUM [Concomitant]
     Route: 042
     Dates: start: 20100610, end: 20100611
  20. HEPARIN SODIUM [Concomitant]
     Route: 042
     Dates: start: 20100612, end: 20100612
  21. HEPARIN SODIUM [Concomitant]
     Route: 042
     Dates: start: 20100613, end: 20100613
  22. HEPARIN SODIUM [Concomitant]
     Route: 042
     Dates: start: 20100614, end: 20100614
  23. HEPARIN SODIUM [Concomitant]
     Route: 042
     Dates: start: 20100615, end: 20100615
  24. HEPARIN SODIUM [Concomitant]
     Route: 042
     Dates: start: 20100616, end: 20100616
  25. HEPARIN SODIUM [Concomitant]
     Route: 042
     Dates: start: 20100617, end: 20100617
  26. HEPARIN SODIUM [Concomitant]
     Dosage: HEPAFLUSH
     Route: 041
     Dates: start: 20100609, end: 20100611
  27. HEPARIN SODIUM [Concomitant]
     Route: 041
     Dates: start: 20100615, end: 20100615
  28. HEPARIN SODIUM [Concomitant]
     Route: 041
     Dates: start: 20100617, end: 20100617
  29. SODIUM CHLORIDE [Concomitant]
     Dosage: ISOTONIC SODIUM CHLORIDE SOLUTION KIT
     Route: 041
     Dates: start: 20100608, end: 20100608
  30. SODIUM CHLORIDE [Concomitant]
     Route: 041
     Dates: start: 20100609, end: 20100612
  31. SODIUM CHLORIDE [Concomitant]
     Route: 041
     Dates: start: 20100614, end: 20100614
  32. SODIUM CHLORIDE [Concomitant]
     Route: 041
     Dates: start: 20100615, end: 20100616
  33. SODIUM CHLORIDE [Concomitant]
     Route: 041
     Dates: start: 20100617, end: 20100617

REACTIONS (5)
  - DEPRESSED LEVEL OF CONSCIOUSNESS [None]
  - PLATELET COUNT DECREASED [None]
  - PLEURAL EFFUSION [None]
  - RENAL IMPAIRMENT [None]
  - TRANSAMINASES INCREASED [None]
